FAERS Safety Report 16314950 (Version 3)
Quarter: 2019Q3

REPORT INFORMATION
  Report Type: Spontaneous
  Country: PR (occurrence: PR)
  Receive Date: 20190515
  Receipt Date: 20190830
  Transmission Date: 20191004
  Serious: No
  Sender: FDA-Public Use
  Company Number: PR-PFIZER INC-2019205610

PATIENT
  Age: 56 Year
  Sex: Female
  Weight: 91 kg

DRUGS (3)
  1. IBRANCE [Suspect]
     Active Substance: PALBOCICLIB
     Dosage: 125 MG, CYCLIC, (DAILY FOR 21 DAYS ON, 7 DAYS OFF)
     Route: 048
     Dates: start: 2019
  2. FASLODEX [Concomitant]
     Active Substance: FULVESTRANT
     Dosage: UNK
  3. IBRANCE [Suspect]
     Active Substance: PALBOCICLIB
     Indication: BREAST CANCER FEMALE
     Dosage: 125 MG, CYCLIC, [1 CAPSULE DAILY ON 21 DAYS AND 7 DAYS REST]
     Route: 048
     Dates: start: 20190501

REACTIONS (7)
  - Vomiting [Unknown]
  - Neoplasm progression [Unknown]
  - Food intolerance [Unknown]
  - Constipation [Unknown]
  - Blood test abnormal [Unknown]
  - Nausea [Unknown]
  - Abdominal discomfort [Unknown]

NARRATIVE: CASE EVENT DATE: 2019
